FAERS Safety Report 9050565 (Version 2)
Quarter: 2013Q1

REPORT INFORMATION
  Report Type: Report from Study
  Country: US (occurrence: US)
  Receive Date: 20130205
  Receipt Date: 20130228
  Transmission Date: 20140127
  Serious: Yes (Hospitalization)
  Sender: FDA-Public Use
  Company Number: US-ABBOTT-13P-163-1042682-00

PATIENT
  Sex: Female
  Weight: 61.29 kg

DRUGS (7)
  1. HUMIRA [Suspect]
     Indication: CROHN^S DISEASE
     Dates: start: 2007, end: 201212
  2. TRAZODONE [Concomitant]
     Indication: INSOMNIA
  3. ATARAX [Concomitant]
     Indication: ANXIETY
  4. EFFEXOR [Concomitant]
     Indication: DEPRESSION
     Dates: start: 2007, end: 201207
  5. HYDROXAZINE [Concomitant]
     Indication: ANXIETY
  6. TRAZADONE [Concomitant]
     Indication: INSOMNIA
  7. BIRTH CONTROL PILLS [Concomitant]
     Indication: CONTRACEPTION

REACTIONS (4)
  - Alcohol abuse [Recovering/Resolving]
  - Depression [Recovering/Resolving]
  - Abdominal pain upper [Not Recovered/Not Resolved]
  - Unevaluable event [Not Recovered/Not Resolved]
